FAERS Safety Report 10081612 (Version 3)
Quarter: 2014Q2

REPORT INFORMATION
  Report Type: Spontaneous
  Country: CO (occurrence: CO)
  Receive Date: 20140416
  Receipt Date: 20140603
  Transmission Date: 20141212
  Serious: Yes (Other)
  Sender: FDA-Public Use
  Company Number: CO-PFIZER INC-2014103709

PATIENT
  Age: 15 Year
  Sex: Female

DRUGS (2)
  1. GENOTROPIN [Suspect]
     Indication: TURNER^S SYNDROME
     Dosage: 2.4 MG, 6X/WEEK
     Route: 058
     Dates: start: 200405, end: 201306
  2. PREMARIN [Concomitant]
     Indication: OVARIAN DISORDER
     Dosage: 0.625 MG, 1X/DAY
     Route: 048
     Dates: start: 201002

REACTIONS (3)
  - Hypothyroidism [Unknown]
  - Hyperthyroidism [Recovering/Resolving]
  - Hypertension [Unknown]
